FAERS Safety Report 16236451 (Version 1)
Quarter: 2019Q2

REPORT INFORMATION
  Report Type: Spontaneous
  Country: CN (occurrence: CN)
  Receive Date: 20190425
  Receipt Date: 20190425
  Transmission Date: 20190711
  Serious: Yes (Hospitalization)
  Sender: FDA-Public Use
  Company Number: CN-SA-2019SA107927

PATIENT
  Age: 56 Year
  Sex: Male
  Weight: 73 kg

DRUGS (3)
  1. ELOXATIN [Suspect]
     Active Substance: OXALIPLATIN
     Indication: NEOPLASM MALIGNANT
     Dosage: 230 MG, QD
     Route: 041
     Dates: start: 20190310, end: 20190310
  2. CAPECITABINE. [Suspect]
     Active Substance: CAPECITABINE
     Indication: NEOPLASM MALIGNANT
     Dosage: 2 G IN MORNING AND 1.5 G AT NIGHT, BID
     Route: 048
     Dates: start: 20190310, end: 20190311
  3. GLUCOSE [Concomitant]
     Active Substance: DEXTROSE
     Dosage: 500 ML
     Route: 041

REACTIONS (1)
  - Bone marrow failure [Recovering/Resolving]

NARRATIVE: CASE EVENT DATE: 20190331
